FAERS Safety Report 8567353 (Version 2)
Quarter: 2012Q4

REPORT INFORMATION
  Report Type: 
  Country: BE (occurrence: BE)
  Receive Date: 20120517
  Receipt Date: 20120903
  Transmission Date: 20130627
  Serious: Yes (Hospitalization, Disabling)
  Sender: FDA-Public Use
  Company Number: PHHO2012BE007210

PATIENT
  Age: 64 Year
  Sex: Female
  Weight: 98 kg

DRUGS (1)
  1. CGS 20267 [Suspect]
     Indication: BREAST CANCER
     Dosage: 2.5 mg, QD
     Route: 048
     Dates: start: 20071211

REACTIONS (4)
  - Retinal vascular thrombosis [Recovered/Resolved with Sequelae]
  - Concomitant disease progression [None]
  - Hypertension [None]
  - Hypercholesterolaemia [None]
